FAERS Safety Report 15780410 (Version 2)
Quarter: 2019Q1

REPORT INFORMATION
  Report Type: Spontaneous
  Country: CN (occurrence: CN)
  Receive Date: 20190102
  Receipt Date: 20190104
  Transmission Date: 20190417
  Serious: Yes (Hospitalization)
  Sender: FDA-Public Use
  Company Number: CN-BAYER-2018-242617

PATIENT
  Age: 27 Year
  Sex: Female

DRUGS (1)
  1. YASMIN [Suspect]
     Active Substance: DROSPIRENONE\ETHINYL ESTRADIOL
     Dosage: UNK
     Route: 048
     Dates: start: 20181023, end: 20181219

REACTIONS (5)
  - Abdominal discomfort [None]
  - Gastroenteritis [None]
  - Withdrawal bleed [None]
  - Diarrhoea [None]
  - Intentional dose omission [None]

NARRATIVE: CASE EVENT DATE: 20181216
